FAERS Safety Report 10333220 (Version 2)
Quarter: 2014Q3

REPORT INFORMATION
  Report Type: Spontaneous
  Country: US (occurrence: US)
  Receive Date: 20140722
  Receipt Date: 20140815
  Transmission Date: 20150326
  Serious: Yes (Death, Hospitalization)
  Sender: FDA-Public Use
  Company Number: US-ACTELION-A-NJ2014-102216

PATIENT
  Age: 83 Year
  Sex: Male

DRUGS (3)
  1. WARFARIN [Concomitant]
     Active Substance: WARFARIN
  2. OPSUMIT [Suspect]
     Active Substance: MACITENTAN
     Indication: COR PULMONALE CHRONIC
     Dosage: 10 MG, UNK
     Route: 048
     Dates: start: 20140622
  3. SILDENAFIL [Concomitant]
     Active Substance: SILDENAFIL

REACTIONS (13)
  - Respiratory failure [Fatal]
  - Malnutrition [Unknown]
  - Right ventricular failure [Fatal]
  - Pneumonia [Unknown]
  - Liver function test abnormal [Unknown]
  - Urinary tract infection [Fatal]
  - Atrial fibrillation [Unknown]
  - Renal failure [Unknown]
  - Chronic obstructive pulmonary disease [Fatal]
  - Cardiac failure congestive [Fatal]
  - Haematuria [Fatal]
  - Coronary artery disease [Unknown]
  - Hypertension [Unknown]

NARRATIVE: CASE EVENT DATE: 20140708
